FAERS Safety Report 7682974-9 (Version None)
Quarter: 2011Q3

REPORT INFORMATION
  Report Type: 
  Country: None (occurrence: None)
  Receive Date: 20110815
  Receipt Date: 20110804
  Transmission Date: 20111222
  Serious: Yes (Hospitalization)
  Sender: FDA-Public Use
  Company Number: DE-ROCHE-796429

PATIENT
  Sex: Male
  Weight: 100 kg

DRUGS (3)
  1. BEVACIZUMAB [Suspect]
     Indication: METASTATIC RENAL CELL CARCINOMA
     Dosage: 6 CYCLES
     Route: 042
     Dates: start: 20110119, end: 20110405
  2. INTERFERON ALFA [Concomitant]
     Indication: METASTATIC RENAL CELL CARCINOMA
     Route: 058
     Dates: start: 20110124, end: 20110405
  3. ACETAMINOPHEN [Concomitant]
     Route: 048
     Dates: start: 20110124, end: 20110405

REACTIONS (2)
  - GENERAL PHYSICAL HEALTH DETERIORATION [None]
  - INFECTION [None]
